FAERS Safety Report 9652885 (Version 2)
Quarter: 2013Q4

REPORT INFORMATION
  Report Type: Spontaneous
  Country: IN (occurrence: IN)
  Receive Date: 20131029
  Receipt Date: 20131029
  Transmission Date: 20140711
  Serious: Yes (Hospitalization)
  Sender: FDA-Public Use
  Company Number: IN-SA-THYM-1003975

PATIENT
  Age: 40 Year
  Sex: Male
  Weight: 62.5 kg

DRUGS (4)
  1. THYMOGLOBULINE [Suspect]
     Indication: BONE MARROW CONDITIONING REGIMEN
     Dosage: 1-1.5 MG/KG, UNK, FOR 3 DAYS
     Route: 065
     Dates: start: 20130703, end: 20130705
  2. TACROLIMUS [Concomitant]
     Dates: start: 20130702
  3. CELLCEPT [Concomitant]
     Dates: start: 20130702
  4. PREDNISOLONE [Concomitant]
     Dates: start: 20130706

REACTIONS (1)
  - Transplant failure [Recovered/Resolved with Sequelae]
